FAERS Safety Report 15737164 (Version 10)
Quarter: 2020Q3

REPORT INFORMATION
  Report Type: Spontaneous
  Country: US (occurrence: US)
  Receive Date: 20181218
  Receipt Date: 20200918
  Transmission Date: 20201102
  Serious: Yes (Hospitalization, Disabling, Other)
  Sender: FDA-Public Use
  Company Number: US-SA-2018SA343022

PATIENT

DRUGS (9)
  1. AUBAGIO [Suspect]
     Active Substance: TERIFLUNOMIDE
     Indication: MULTIPLE SCLEROSIS
     Dosage: 14 MG, QD
     Route: 048
  2. AUBAGIO [Suspect]
     Active Substance: TERIFLUNOMIDE
     Dosage: 14 MG, QD
     Route: 048
     Dates: start: 20181016
  3. AUBAGIO [Suspect]
     Active Substance: TERIFLUNOMIDE
     Dosage: 7 MG QD
     Route: 048
  4. VIT D [Concomitant]
     Active Substance: VITAMIN D NOS
     Dosage: 4000 IU, QD
  5. AUBAGIO [Suspect]
     Active Substance: TERIFLUNOMIDE
     Dosage: 14 MG, QD
     Route: 048
     Dates: start: 20181001
  6. AUBAGIO [Suspect]
     Active Substance: TERIFLUNOMIDE
     Dosage: 14MG, QD
     Route: 048
     Dates: start: 20180928
  7. MEDROL [Concomitant]
     Active Substance: METHYLPREDNISOLONE
     Dosage: UNK
     Dates: start: 201812
  8. AUBAGIO [Suspect]
     Active Substance: TERIFLUNOMIDE
     Dosage: 14 MG, QD
     Route: 048
     Dates: start: 201903
  9. AUBAGIO [Suspect]
     Active Substance: TERIFLUNOMIDE
     Dosage: 14 MG QD
     Route: 048

REACTIONS (29)
  - Fall [Unknown]
  - Arthralgia [Unknown]
  - Micturition urgency [Unknown]
  - Mobility decreased [Unknown]
  - Hypoaesthesia [Unknown]
  - Hepatic enzyme increased [Not Recovered/Not Resolved]
  - Musculoskeletal discomfort [Unknown]
  - Dysphagia [Unknown]
  - Balance disorder [Unknown]
  - Fall [Unknown]
  - Asthenia [Unknown]
  - Back pain [Unknown]
  - Loss of consciousness [Not Recovered/Not Resolved]
  - Balance disorder [Not Recovered/Not Resolved]
  - Infection parasitic [Unknown]
  - Paraesthesia [Not Recovered/Not Resolved]
  - Fatigue [Unknown]
  - Weight increased [Unknown]
  - Neck pain [Not Recovered/Not Resolved]
  - Loss of personal independence in daily activities [Unknown]
  - Spinal pain [Unknown]
  - Urinary tract infection [Not Recovered/Not Resolved]
  - Injury [Unknown]
  - Neuralgia [Unknown]
  - Visual field defect [Unknown]
  - Bladder disorder [Unknown]
  - Blood cholesterol increased [Unknown]
  - Gait disturbance [Unknown]
  - Headache [Unknown]

NARRATIVE: CASE EVENT DATE: 2019
